FAERS Safety Report 4286573-0 (Version None)
Quarter: 2004Q1

REPORT INFORMATION
  Report Type: 
  Country: None (occurrence: None)
  Receive Date: 20040205
  Receipt Date: 20040205
  Transmission Date: 20041129
  Serious: Yes (Life-Threatening, Hospitalization)
  Sender: FDA-Public Use
  Company Number: None

PATIENT
  Age: 37 Year
  Sex: Female
  Weight: 73.4827 kg

DRUGS (4)
  1. LOVENOX [Suspect]
     Indication: INTERNATIONAL NORMALISED RATIO DECREASED
     Dosage: 0.8 ML SC BID X 5 DAYS
     Route: 058
     Dates: start: 20031022, end: 20031024
  2. WARFARIN SODIUM [Concomitant]
  3. ATENOLOL [Concomitant]
  4. FERROUS SULFATE TAB [Concomitant]

REACTIONS (1)
  - THROMBOCYTOPENIA [None]
